FAERS Safety Report 8084862-5 (Version None)
Quarter: 2012Q1

REPORT INFORMATION
  Report Type: 
  Country: None (occurrence: None)
  Receive Date: 20120128
  Receipt Date: 20110323
  Transmission Date: 20120608
  Serious: No
  Sender: FDA-Public Use
  Company Number: US-ABBOTT-11P-163-0713770-00

PATIENT
  Age: 82 Year
  Sex: Female

DRUGS (14)
  1. METOCLOPRAMIDE [Concomitant]
     Indication: GASTROOESOPHAGEAL REFLUX DISEASE
  2. REFRESH [Concomitant]
     Indication: PRODUCT USED FOR UNKNOWN INDICATION
     Dosage: EYE DROPS
     Route: 047
  3. TRAVATAN [Concomitant]
     Indication: GLAUCOMA
     Route: 047
  4. ASPIRIN [Concomitant]
     Indication: PRODUCT USED FOR UNKNOWN INDICATION
  5. AMEPRAZOLE [Concomitant]
     Indication: GASTRIC DISORDER
  6. DIOVAN [Concomitant]
     Indication: HYPERTENSION
     Dosage: 1/2 TABLET
  7. HYDROCHLOROTHIAZIDE [Concomitant]
     Indication: HYPERTENSION
  8. METOPROLOL TARTRATE [Concomitant]
     Indication: HYPERTENSION
  9. DICYCLOMEN [Concomitant]
     Indication: PRODUCT USED FOR UNKNOWN INDICATION
  10. DOCUSATE SODIUM [Concomitant]
     Indication: PRODUCT USED FOR UNKNOWN INDICATION
  11. CELEBREX [Concomitant]
     Indication: PAIN
  12. PATANOL [Concomitant]
     Indication: GLAUCOMA
     Dosage: EYE DROPS TO BOTH EYES
  13. HUMIRA [Suspect]
     Indication: RHEUMATOID ARTHRITIS
  14. RESTASIS [Concomitant]
     Indication: PRODUCT USED FOR UNKNOWN INDICATION
     Route: 047

REACTIONS (1)
  - INJECTION SITE PAIN [None]
